FAERS Safety Report 12376637 (Version 2)
Quarter: 2016Q2

REPORT INFORMATION
  Report Type: Report from Study
  Country: US (occurrence: US)
  Receive Date: 20160517
  Receipt Date: 20160517
  Transmission Date: 20160815
  Serious: No
  Sender: FDA-Public Use
  Company Number: US-MALLINCKRODT-T201502617

PATIENT
  Sex: Male

DRUGS (1)
  1. REPOSITORY CORTICOTROPIN INJECTION [Suspect]
     Active Substance: CORTICOTROPIN
     Indication: SARCOIDOSIS
     Dosage: 80 UNITS, TWICE PER WEEK
     Route: 058
     Dates: start: 20150429

REACTIONS (4)
  - Blood glucose decreased [Unknown]
  - Abdominal distension [Recovered/Resolved]
  - Drug effect decreased [Unknown]
  - Diarrhoea [Recovering/Resolving]
